FAERS Safety Report 9239710 (Version 1)
Quarter: 2013Q2

REPORT INFORMATION
  Report Type: Spontaneous
  Country: US (occurrence: US)
  Receive Date: 20130418
  Receipt Date: 20130418
  Transmission Date: 20140414
  Serious: No
  Sender: FDA-Public Use
  Company Number: US-ASTRAZENECA-2013SE21816

PATIENT
  Age: 60 Year
  Sex: Male

DRUGS (4)
  1. LISINOPRIL [Suspect]
     Route: 048
     Dates: start: 20080722
  2. LISINOPRIL [Suspect]
     Route: 048
     Dates: start: 20120206, end: 20130213
  3. TOPROL XL [Suspect]
     Indication: HYPERTENSION
     Route: 048
     Dates: start: 20120508
  4. METOPROLOL TARTRATE [Suspect]
     Route: 048
     Dates: start: 20101124

REACTIONS (3)
  - Retching [Unknown]
  - Cough [Unknown]
  - Drug name confusion [Unknown]
